FAERS Safety Report 5281475-5 (Version None)
Quarter: 2007Q1

REPORT INFORMATION
  Report Type: 
  Country: None (occurrence: None)
  Receive Date: 20070323
  Receipt Date: 20070323
  Transmission Date: 20070707
  Serious: Yes (Other)
  Sender: FDA-Public Use
  Company Number: None

PATIENT
  Age: 71 Year
  Sex: Male
  Weight: 55.6 kg

DRUGS (2)
  1. ZYVOX [Suspect]
     Indication: PERITONEAL FLUID ANALYSIS ABNORMAL
     Dosage: 600 MG BID IV
     Route: 042
     Dates: start: 20070305, end: 20070315
  2. ZYVOX [Suspect]
     Indication: STAPHYLOCOCCAL INFECTION
     Dosage: 600 MG BID IV
     Route: 042
     Dates: start: 20070305, end: 20070315

REACTIONS (1)
  - PLATELET COUNT DECREASED [None]
